FAERS Safety Report 15026868 (Version 2)
Quarter: 2019Q4

REPORT INFORMATION
  Report Type: Spontaneous
  Country: GB (occurrence: GB)
  Receive Date: 20180619
  Receipt Date: 20191119
  Transmission Date: 20200122
  Serious: Yes (Other)
  Sender: FDA-Public Use
  Company Number: GB-SUN PHARMACEUTICAL INDUSTRIES LTD-2018R1-175888

PATIENT
  Age: 91 Year
  Sex: Female
  Weight: 78 kg

DRUGS (1)
  1. CODEINE [Suspect]
     Active Substance: CODEINE
     Indication: PRODUCT USED FOR UNKNOWN INDICATION
     Dosage: UNK
     Route: 065
     Dates: start: 20180515

REACTIONS (3)
  - Migraine [Unknown]
  - Muscular weakness [Unknown]
  - Nausea [Unknown]

NARRATIVE: CASE EVENT DATE: 20180515
